FAERS Safety Report 17872813 (Version 1)
Quarter: 2020Q2

REPORT INFORMATION
  Report Type: Report from Study
  Country: US (occurrence: US)
  Receive Date: 20200608
  Receipt Date: 20200608
  Transmission Date: 20200714
  Serious: Yes (Hospitalization)
  Sender: FDA-Public Use
  Company Number: US-TAIHO ONCOLOGY  INC-EU-2020-01876

PATIENT
  Age: 48 Year
  Sex: Male

DRUGS (17)
  1. LONSURF [Suspect]
     Active Substance: TIPIRACIL HYDROCHLORIDE\TRIFLURIDINE
     Indication: CARCINOID TUMOUR
     Dosage: CYCLE UNKNOWN
     Route: 048
     Dates: start: 201910, end: 202004
  2. LOSARTAN POTASSIUM. [Concomitant]
     Active Substance: LOSARTAN POTASSIUM
  3. CELECOXIB. [Concomitant]
     Active Substance: CELECOXIB
  4. SENOKOT-S [Concomitant]
     Active Substance: DOCUSATE SODIUM\SENNOSIDES
  5. NARCAN [Concomitant]
     Active Substance: NALOXONE HYDROCHLORIDE
  6. CEFDINIR. [Concomitant]
     Active Substance: CEFDINIR
  7. METRONIDAZOLE. [Concomitant]
     Active Substance: METRONIDAZOLE
  8. METOPROLOL. [Concomitant]
     Active Substance: METOPROLOL
  9. GABAPENTIN. [Concomitant]
     Active Substance: GABAPENTIN
  10. OXYCODONE [Concomitant]
     Active Substance: OXYCODONE
  11. POLYETH GLY [Concomitant]
  12. STIVARGA [Concomitant]
     Active Substance: REGORAFENIB
  13. DULOXETINE. [Concomitant]
     Active Substance: DULOXETINE
  14. ONDANSETRON [Concomitant]
     Active Substance: ONDANSETRON
  15. MORPHINE [Concomitant]
     Active Substance: MORPHINE
  16. FINASTERIDE. [Concomitant]
     Active Substance: FINASTERIDE
  17. XARELTO [Concomitant]
     Active Substance: RIVAROXABAN

REACTIONS (2)
  - Gastrointestinal infection [Unknown]
  - Biopsy [Unknown]

NARRATIVE: CASE EVENT DATE: 202005
